FAERS Safety Report 23645486 (Version 1)
Quarter: 2024Q1

REPORT INFORMATION
  Report Type: Spontaneous
  Country: US (occurrence: US)
  Receive Date: 20240319
  Receipt Date: 20240319
  Transmission Date: 20240410
  Serious: Yes (Other)
  Sender: FDA-Public Use
  Company Number: US-NOVITIUMPHARMA-2024USNVP00259

PATIENT
  Age: 50 Year
  Sex: Female

DRUGS (3)
  1. LACOSAMIDE [Suspect]
     Active Substance: LACOSAMIDE
     Indication: Seizure prophylaxis
  2. LACOSAMIDE [Suspect]
     Active Substance: LACOSAMIDE
     Dosage: INCREASED DOSE
  3. LEVETIRACETAM [Concomitant]
     Active Substance: LEVETIRACETAM
     Indication: Seizure prophylaxis

REACTIONS (13)
  - Respiratory distress [Recovering/Resolving]
  - Dysphagia [Recovering/Resolving]
  - Drooling [Recovering/Resolving]
  - Somnolence [Recovering/Resolving]
  - Disturbance in attention [Recovering/Resolving]
  - Hyperhidrosis [Recovering/Resolving]
  - Head injury [Recovering/Resolving]
  - Vomiting [Recovering/Resolving]
  - Dizziness [Recovering/Resolving]
  - Diplopia [Recovering/Resolving]
  - Systolic hypertension [Recovering/Resolving]
  - Sinus tachycardia [Recovering/Resolving]
  - Alanine aminotransferase increased [Recovering/Resolving]
